FAERS Safety Report 7715928-4 (Version None)
Quarter: 2011Q3

REPORT INFORMATION
  Report Type: 
  Country: None (occurrence: None)
  Receive Date: 20110823
  Receipt Date: 20110815
  Transmission Date: 20111222
  Serious: Yes (Life-Threatening, Hospitalization)
  Sender: FDA-Public Use
  Company Number: 121537

PATIENT
  Age: 48 Year
  Sex: Male

DRUGS (1)
  1. CERUBIDINE [Suspect]
     Indication: ACUTE MYELOID LEUKAEMIA
     Dosage: 60MG/M2, 1X/DAY, IV
     Route: 042
     Dates: start: 20080312, end: 20080314

REACTIONS (2)
  - SEPTIC SHOCK [None]
  - ESCHERICHIA TEST POSITIVE [None]
